FAERS Safety Report 10264196 (Version 1)
Quarter: 2014Q2

REPORT INFORMATION
  Report Type: Spontaneous
  Country: US (occurrence: None)
  Receive Date: 20140624
  Receipt Date: 20140624
  Transmission Date: 20141212
  Serious: Yes (Death)
  Sender: FDA-Public Use
  Company Number: 201406000257

PATIENT
  Sex: Female
  Weight: 3.2 kg

DRUGS (2)
  1. INOMAX [Suspect]
     Indication: OXYGEN SATURATION DECREASED
     Dosage: 20 PPM, CONTINUOUS, INHALATION
     Route: 055
     Dates: start: 20140610, end: 20140610
  2. INOMAX [Suspect]
     Indication: OXYGEN SATURATION DECREASED
     Dosage: 20 PPM, CONTINUOUS, INHALATION
     Route: 055
     Dates: start: 20140610, end: 20140610

REACTIONS (7)
  - Off label use [None]
  - General physical health deterioration [None]
  - Heart rate decreased [None]
  - Blood pH decreased [None]
  - Metabolic disorder [None]
  - Pneumothorax [None]
  - Lung disorder [None]
